FAERS Safety Report 4485645-5 (Version None)
Quarter: 2004Q4

REPORT INFORMATION
  Report Type: 
  Country: None (occurrence: None)
  Receive Date: 20041026
  Receipt Date: 20041018
  Transmission Date: 20050328
  Serious: Yes (Other)
  Sender: FDA-Public Use
  Company Number: US-MERCK-0410USA02690

PATIENT

DRUGS (1)
  1. VIOXX [Suspect]
     Route: 048
     Dates: end: 20040101

REACTIONS (1)
  - CEREBROVASCULAR ACCIDENT [None]
